FAERS Safety Report 6080766-8 (Version None)
Quarter: 2009Q1

REPORT INFORMATION
  Report Type: 
  Country: None (occurrence: None)
  Receive Date: 20090217
  Receipt Date: 20090209
  Transmission Date: 20090719
  Serious: Yes (Hospitalization, Other)
  Sender: FDA-Public Use
  Company Number: PHHY2008GB31270

PATIENT
  Sex: Male
  Weight: 90.8 kg

DRUGS (8)
  1. CLOZARIL [Suspect]
     Indication: SCHIZOPHRENIA
     Dosage: 775 MG/DAY
     Dates: start: 19970101
  2. CLOZARIL [Suspect]
     Dosage: 400 MG/DAY
  3. CLOZARIL [Suspect]
     Dosage: 50 MG/DAY
     Dates: start: 20081209
  4. AMISULPRIDE [Concomitant]
     Indication: PSYCHOTIC DISORDER
     Dosage: 500 MG, BID
     Route: 048
  5. LANSOPRAZOLE [Concomitant]
     Indication: GASTRITIS
     Dosage: 30 MG
     Route: 048
  6. SIMVASTATIN [Concomitant]
     Indication: BLOOD CHOLESTEROL INCREASED
     Dosage: 40 MG
     Route: 048
  7. METFORMIN HCL [Concomitant]
     Indication: DIABETES MELLITUS
     Dosage: 500 MG, BID
     Route: 048
  8. ASPIRIN [Concomitant]
     Dosage: 75 MG
     Route: 048

REACTIONS (9)
  - AGITATION [None]
  - BUNDLE BRANCH BLOCK RIGHT [None]
  - DRUG WITHDRAWAL SYNDROME [None]
  - ELECTROCARDIOGRAM PR PROLONGATION [None]
  - ELECTROCARDIOGRAM QT PROLONGED [None]
  - HEART RATE INCREASED [None]
  - HYPERTENSION [None]
  - MENTAL DISORDER [None]
  - TACHYCARDIA [None]
